FAERS Safety Report 6129388-0 (Version None)
Quarter: 2009Q1

REPORT INFORMATION
  Report Type: 
  Country: None (occurrence: None)
  Receive Date: 20090324
  Receipt Date: 20090310
  Transmission Date: 20090719
  Serious: Yes (Other)
  Sender: FDA-Public Use
  Company Number: US-PFIZER INC-2006102242

PATIENT
  Sex: Female
  Weight: 60.771 kg

DRUGS (16)
  1. PROVERA [Suspect]
     Indication: HORMONE REPLACEMENT THERAPY
     Dosage: UNK
     Route: 048
     Dates: start: 19920101, end: 20021001
  2. PROVERA [Suspect]
     Dosage: 10 MG, UNK
     Dates: start: 19920701
  3. PROVERA [Suspect]
     Dosage: 2.5 MG, UNK
     Dates: start: 19920701, end: 19950901
  4. PREMPRO [Suspect]
     Indication: HORMONE REPLACEMENT THERAPY
     Dosage: UNK
     Route: 065
     Dates: start: 19920101, end: 20021001
  5. PROMETRIUM [Suspect]
     Indication: HORMONE REPLACEMENT THERAPY
     Dosage: UNK
     Route: 065
     Dates: start: 19920101, end: 20021001
  6. PROMETRIUM [Suspect]
     Dosage: 100 MG, UNK
     Dates: start: 20000201, end: 20021001
  7. PREMARIN [Suspect]
     Indication: HORMONE REPLACEMENT THERAPY
     Dosage: UNK
     Route: 065
     Dates: start: 19920101, end: 20021001
  8. PREMARIN [Suspect]
     Dosage: 0.3 MG, UNK
     Dates: start: 20020801, end: 20021001
  9. PREMARIN [Suspect]
     Dosage: 0.625 MG, UNK
     Dates: start: 19920701, end: 19950901
  10. PREMARIN [Suspect]
     Dosage: 0.625 MG, UNK
     Dates: start: 20000201, end: 20020801
  11. ACETYLSALICYLIC ACID [Concomitant]
     Indication: CEREBROVASCULAR ACCIDENT
     Dosage: UNK
     Dates: start: 20000101
  12. ACETYLSALICYLIC ACID [Concomitant]
     Indication: COAGULOPATHY
  13. HYDROCHLOROTHIAZIDE [Concomitant]
     Indication: BLOOD PRESSURE
     Dosage: UNK
     Dates: start: 19960101
  14. CARDIZEM [Concomitant]
     Indication: BLOOD PRESSURE
     Dosage: UNK
     Dates: start: 20010101
  15. PREVACID [Concomitant]
     Indication: ASTHMA
     Dosage: UNK
     Dates: start: 20000601
  16. CLARITIN [Concomitant]
     Indication: MULTIPLE ALLERGIES
     Dosage: UNK
     Dates: start: 20000101

REACTIONS (1)
  - BREAST CANCER [None]
